FAERS Safety Report 16986689 (Version 1)
Quarter: 2019Q4

REPORT INFORMATION
  Report Type: Spontaneous
  Country: US (occurrence: US)
  Receive Date: 20191031
  Receipt Date: 20191031
  Transmission Date: 20200122
  Serious: No
  Sender: FDA-Public Use
  Company Number: None

PATIENT
  Age: 82 Year
  Sex: Female
  Weight: 48.6 kg

DRUGS (9)
  1. BISOPROLOL [Concomitant]
     Active Substance: BISOPROLOL
  2. VITAMIN C [Concomitant]
     Active Substance: ASCORBIC ACID
  3. VIT D [Concomitant]
     Active Substance: VITAMIN D NOS
  4. MULTI VITAMINS [Concomitant]
     Active Substance: VITAMINS
  5. VITAMIN B12 [Concomitant]
     Active Substance: CYANOCOBALAMIN
  6. ZEBETA [Suspect]
     Active Substance: BISOPROLOL FUMARATE
     Indication: HYPERTENSION
     Dosage: ?          QUANTITY:1 TABLET(S);?
     Route: 048
     Dates: start: 20190627
  7. LOSARTAN. [Suspect]
     Active Substance: LOSARTAN
  8. TUMERIC [Concomitant]
     Active Substance: HERBALS\TURMERIC
  9. LUTIN [Concomitant]

REACTIONS (3)
  - Pain [None]
  - Fatigue [None]
  - Poor peripheral circulation [None]

NARRATIVE: CASE EVENT DATE: 20190630
